FAERS Safety Report 18669438 (Version 1)
Quarter: 2020Q4

REPORT INFORMATION
  Report Type: Spontaneous
  Country: LV (occurrence: LV)
  Receive Date: 20201228
  Receipt Date: 20201228
  Transmission Date: 20210114
  Serious: Yes (Other)
  Sender: FDA-Public Use
  Company Number: LV-FRESENIUS KABI-FK202013911

PATIENT
  Age: 53 Year
  Sex: Female

DRUGS (19)
  1. RITUXIMAB. [Suspect]
     Active Substance: RITUXIMAB
     Dosage: DAY 1
     Route: 042
     Dates: start: 201809
  2. PREDNISONE. [Suspect]
     Active Substance: PREDNISONE
     Indication: NON-HODGKIN^S LYMPHOMA STAGE III
     Dosage: DAY 2-6
     Route: 065
     Dates: start: 201512
  3. CYCLOPHOSPHAMIDE. [Suspect]
     Active Substance: CYCLOPHOSPHAMIDE
     Indication: NON-HODGKIN^S LYMPHOMA STAGE III
     Dosage: DAY 2
     Route: 065
     Dates: start: 201512
  4. DOXORUBICIN [Suspect]
     Active Substance: DOXORUBICIN
     Indication: NON-HODGKIN^S LYMPHOMA STAGE III
     Dosage: DAY 2
     Route: 065
     Dates: start: 201512
  5. ETOPOSIDE (MANUFACTURER UNKNOWN) [Suspect]
     Active Substance: ETOPOSIDE
     Indication: BONE MARROW CONDITIONING REGIMEN
     Dosage: ON DAYS -5 TO -2
     Route: 065
     Dates: start: 201712
  6. RITUXIMAB. [Suspect]
     Active Substance: RITUXIMAB
     Indication: NON-HODGKIN^S LYMPHOMA STAGE III
     Dosage: DAY 1
     Dates: start: 201512
  7. BENDAMUSTINE [Suspect]
     Active Substance: BENDAMUSTINE
     Indication: DISEASE PROGRESSION
     Dosage: DAYS 1 AND 2
     Route: 065
     Dates: start: 201809
  8. CYTARABINE (MANUFACTURER UNKNOWN) [Suspect]
     Active Substance: CYTARABINE
     Indication: NON-HODGKIN^S LYMPHOMA STAGE III
     Dosage: ON DAY 3
     Route: 065
     Dates: start: 201706
  9. CARMUSTINE. [Suspect]
     Active Substance: CARMUSTINE
     Indication: BONE MARROW CONDITIONING REGIMEN
     Dosage: ON DAY -6
     Dates: start: 201712
  10. DEXAMETHASONE. [Suspect]
     Active Substance: DEXAMETHASONE
     Indication: NON-HODGKIN^S LYMPHOMA STAGE III
     Dosage: ON DAYS 1-4
     Route: 065
     Dates: start: 201706
  11. CYTARABINE (MANUFACTURER UNKNOWN) [Suspect]
     Active Substance: CYTARABINE
     Indication: BONE MARROW CONDITIONING REGIMEN
     Dosage: DAYS -5 TO -2
     Route: 065
     Dates: start: 201712
  12. MELPHALAN. [Suspect]
     Active Substance: MELPHALAN
     Indication: BONE MARROW CONDITIONING REGIMEN
     Dosage: ON DAY -6
     Dates: start: 201712
  13. RITUXIMAB. [Suspect]
     Active Substance: RITUXIMAB
     Dosage: DAY 7
     Dates: start: 201712
  14. FILGRASTIM [Concomitant]
     Active Substance: FILGRASTIM
     Indication: AUTOLOGOUS HAEMATOPOIETIC STEM CELL TRANSPLANT
     Dosage: 6-DAY COURSE
     Route: 065
  15. RITUXIMAB. [Suspect]
     Active Substance: RITUXIMAB
     Indication: DISEASE PROGRESSION
     Dosage: DAY 1
     Dates: start: 201706
  16. CYCLOPHOSPHAMIDE. [Suspect]
     Active Substance: CYCLOPHOSPHAMIDE
     Dosage: DAY 2
     Route: 065
     Dates: start: 201512
  17. VINCRISTINE [Suspect]
     Active Substance: VINCRISTINE
     Indication: NON-HODGKIN^S LYMPHOMA STAGE III
     Dosage: DAY 2 AND 3
     Route: 065
     Dates: start: 201512
  18. VINCRISTINE [Suspect]
     Active Substance: VINCRISTINE
     Dosage: DAY 2
     Route: 065
     Dates: start: 201512
  19. CISPLATIN. [Suspect]
     Active Substance: CISPLATIN
     Indication: NON-HODGKIN^S LYMPHOMA STAGE III
     Dosage: ON DAY 1
     Dates: start: 201706

REACTIONS (5)
  - Progressive multifocal leukoencephalopathy [Unknown]
  - Herpes zoster [Unknown]
  - Human herpesvirus 6 infection [Unknown]
  - JC virus infection [Unknown]
  - Human herpesvirus 7 infection [Unknown]
